FAERS Safety Report 11984365 (Version 1)
Quarter: 2016Q1

REPORT INFORMATION
  Report Type: Spontaneous
  Country: US (occurrence: US)
  Receive Date: 20160201
  Receipt Date: 20160201
  Transmission Date: 20160526
  Serious: No
  Sender: FDA-Public Use
  Company Number: US-KADMON PHARMACEUTICALS, LLC-KAD201509-003202

PATIENT
  Age: 61 Year
  Sex: Female

DRUGS (2)
  1. VIEKIRA PAK [Suspect]
     Active Substance: DASABUVIR\OMBITASVIR\PARITAPREVIR\RITONAVIR
     Indication: HEPATITIS C
     Dosage: TABLET
     Route: 048
     Dates: start: 201508
  2. RIBAVIRIN. [Suspect]
     Active Substance: RIBAVIRIN
     Indication: HEPATITIS C
     Dosage: 3 TABLETS IN AM AND 2 TABLETS IN PM
     Route: 048
     Dates: start: 201508

REACTIONS (4)
  - Drug dose omission [Recovered/Resolved]
  - Asthenia [Unknown]
  - Crying [Unknown]
  - Fatigue [Unknown]

NARRATIVE: CASE EVENT DATE: 20150831
